FAERS Safety Report 14007968 (Version 2)
Quarter: 2017Q4

REPORT INFORMATION
  Report Type: Spontaneous
  Country: US (occurrence: US)
  Receive Date: 20170925
  Receipt Date: 20171018
  Transmission Date: 20180321
  Serious: No
  Sender: FDA-Public Use
  Company Number: US-GLAXOSMITHKLINE-US2017GSK146947

PATIENT
  Sex: Female
  Weight: 170 kg

DRUGS (2)
  1. NUCALA [Suspect]
     Active Substance: MEPOLIZUMAB
     Dosage: UNK
  2. NUCALA [Suspect]
     Active Substance: MEPOLIZUMAB
     Indication: ASTHMA
     Dosage: 100 MG,  1X PER 4 WEEKS
     Route: 042
     Dates: start: 20170627, end: 20170725

REACTIONS (2)
  - Back pain [Unknown]
  - Myalgia [Unknown]
